FAERS Safety Report 7325304-4 (Version None)
Quarter: 2011Q1

REPORT INFORMATION
  Report Type: 
  Country: None (occurrence: None)
  Receive Date: 20110302
  Receipt Date: 20100826
  Transmission Date: 20110831
  Serious: Yes (Hospitalization, Other)
  Sender: FDA-Public Use
  Company Number: US-BAYER-201015535NA

PATIENT
  Sex: Female
  Weight: 63.182 kg

DRUGS (2)
  1. YAZ [Suspect]
  2. YAZ [Suspect]
     Indication: CONTRACEPTION
     Route: 048
     Dates: start: 20061001, end: 20070306

REACTIONS (3)
  - GALLBLADDER DISORDER [None]
  - DEEP VEIN THROMBOSIS [None]
  - CONVULSION [None]
